FAERS Safety Report 7939509-2 (Version None)
Quarter: 2011Q4

REPORT INFORMATION
  Report Type: 
  Country: None (occurrence: None)
  Receive Date: 20111125
  Receipt Date: 20111115
  Transmission Date: 20120403
  Serious: Yes (Other)
  Sender: FDA-Public Use
  Company Number: FR-AMGEN-FRASP2011060901

PATIENT
  Age: 75 Year
  Sex: Male

DRUGS (2)
  1. ENBREL [Suspect]
     Indication: ANKYLOSING SPONDYLITIS
     Dosage: UNK
     Dates: start: 20110801, end: 20111101
  2. RIFAMPIN AND ISONIAZID [Concomitant]
     Indication: TUBERCULOSIS
     Dosage: UNK

REACTIONS (2)
  - DYSKINESIA [None]
  - TOOTH ABSCESS [None]
